FAERS Safety Report 21516159 (Version 1)
Quarter: 2022Q4

REPORT INFORMATION
  Report Type: Spontaneous
  Country: US (occurrence: US)
  Receive Date: 20221027
  Receipt Date: 20221027
  Transmission Date: 20230113
  Serious: No
  Sender: FDA-Public Use
  Company Number: US-FOUNDATIONCONSUMERHC-2022-US-019320

PATIENT
  Age: 44 Year
  Sex: Female
  Weight: 49.9 kg

DRUGS (3)
  1. PLAN B ONE-STEP [Suspect]
     Active Substance: LEVONORGESTREL
     Indication: Contraception
     Dosage: 1.5MG X AT LEAST 21 TIMES
     Route: 048
     Dates: start: 202107, end: 20220804
  2. ELLA [Suspect]
     Active Substance: ULIPRISTAL ACETATE
  3. BIOTIN [Concomitant]
     Active Substance: BIOTIN

REACTIONS (6)
  - Menstruation delayed [Recovered/Resolved]
  - Intentional product misuse [Unknown]
  - Dysmenorrhoea [Not Recovered/Not Resolved]
  - Increased appetite [Not Recovered/Not Resolved]
  - Dizziness [Not Recovered/Not Resolved]
  - Product use in unapproved indication [Unknown]

NARRATIVE: CASE EVENT DATE: 20210601
